FAERS Safety Report 7358943-5 (Version None)
Quarter: 2011Q1

REPORT INFORMATION
  Report Type: 
  Country: None (occurrence: None)
  Receive Date: 20110317
  Receipt Date: 20110311
  Transmission Date: 20110831
  Serious: Yes (Death, Hospitalization)
  Sender: FDA-Public Use
  Company Number: DE-ELI_LILLY_AND_COMPANY-DE200911003725

PATIENT
  Sex: Female
  Weight: 120 kg

DRUGS (6)
  1. CETUXIMAB [Suspect]
     Indication: NON-SMALL CELL LUNG CANCER
     Dosage: 400 MG/M2, DAY 1 CYCLE 1
     Route: 042
     Dates: start: 20090602, end: 20090602
  2. PEMETREXED [Suspect]
     Dosage: 500 MG/M2, DAY 1 EVERY 21 DAYS
     Route: 042
     Dates: start: 20090902, end: 20091104
  3. CETUXIMAB [Suspect]
     Dosage: 250 MG/M2, WEEKLY (1/W)
     Route: 042
     Dates: end: 20090810
  4. CETUXIMAB [Suspect]
     Dosage: 250 MG/M2, WEEKLY
     Route: 042
     Dates: start: 20090902, end: 20091104
  5. PEMETREXED [Suspect]
     Indication: NON-SMALL CELL LUNG CANCER
     Dosage: 500 MG/M2, DAY 1 EVERY 21 DAYS
     Route: 042
     Dates: start: 20090602, end: 20090810
  6. CISPLATIN [Suspect]
     Indication: NON-SMALL CELL LUNG CANCER
     Dosage: 75 MG/M2, ON DAY ONE EVERY 21 DAYS
     Route: 042
     Dates: start: 20090602, end: 20090810

REACTIONS (7)
  - DEATH [None]
  - RENAL FAILURE [None]
  - STASIS DERMATITIS [None]
  - BLOOD ALBUMIN DECREASED [None]
  - OEDEMA PERIPHERAL [None]
  - ANAEMIA [None]
  - BLOOD SODIUM DECREASED [None]
